FAERS Safety Report 5713118-8 (Version None)
Quarter: 2008Q2

REPORT INFORMATION
  Report Type: 
  Country: None (occurrence: None)
  Receive Date: 20080422
  Receipt Date: 20070711
  Transmission Date: 20081010
  Serious: No
  Sender: FDA-Public Use
  Company Number: US-BRISTOL-MYERS SQUIBB COMPANY-13757463

PATIENT
  Age: 75 Year
  Sex: Female
  Weight: 73 kg

DRUGS (2)
  1. HYDREA [Suspect]
     Indication: THROMBOCYTHAEMIA
  2. ANTIDEPRESSANT [Concomitant]

REACTIONS (2)
  - ADVERSE DRUG REACTION [None]
  - HAEMORRHAGE [None]
